FAERS Safety Report 6539646-3 (Version None)
Quarter: 2010Q1

REPORT INFORMATION
  Report Type: 
  Country: None (occurrence: None)
  Receive Date: 20100115
  Receipt Date: 20100111
  Transmission Date: 20100710
  Serious: Yes (Hospitalization)
  Sender: FDA-Public Use
  Company Number: FR-BRISTOL-MYERS SQUIBB COMPANY-14929558

PATIENT
  Age: 78 Year
  Sex: Male

DRUGS (16)
  1. ELISOR TABS 20 MG [Suspect]
     Route: 048
     Dates: start: 19970101, end: 20091113
  2. AUGMENTIN [Suspect]
     Dosage: 1 DF - 1G/125MG ; INTERRUPTED ON 16-OCT-2009
     Route: 048
     Dates: start: 20090929
  3. STILNOX [Suspect]
     Dosage: TABS
     Dates: end: 20091113
  4. DOLIPRANE [Suspect]
     Dosage: CAPS
  5. NEXIUM [Concomitant]
     Dosage: TABS
  6. PREVISCAN [Concomitant]
     Dosage: TABS
  7. LASILIX [Concomitant]
     Dosage: TABS
  8. ALDACTONE [Concomitant]
     Dosage: TABS
  9. CARDENSIEL [Concomitant]
     Dosage: TABS
  10. VASTAREL [Concomitant]
     Dosage: VASTAREL LP  TABS
     Dates: start: 19970101, end: 20091113
  11. PERINDOPRIL ERBUMINE [Concomitant]
     Route: 048
  12. NITROGLYCERIN [Concomitant]
     Dates: start: 19970101
  13. DISCOTRINE [Concomitant]
  14. CORTANCYL [Concomitant]
     Dosage: DEGRESSIVE DOSE (7.5 MG IN OCTOBER 2009)
     Dates: start: 20090601
  15. NOVOMIX [Concomitant]
     Dates: start: 20090601
  16. VAXIGRIP [Concomitant]
     Route: 030
     Dates: start: 20091003

REACTIONS (2)
  - CHOLANGITIS [None]
  - HEPATITIS CHOLESTATIC [None]
